FAERS Safety Report 23766336 (Version 1)
Quarter: 2024Q2

REPORT INFORMATION
  Report Type: Spontaneous
  Country: BR (occurrence: BR)
  Receive Date: 20240422
  Receipt Date: 20240422
  Transmission Date: 20240716
  Serious: Yes (Hospitalization, Other)
  Sender: FDA-Public Use
  Company Number: BR-TWI PHARMACEUTICAL, INC-2024SCTW000067

PATIENT

DRUGS (1)
  1. TESTOSTERONE [Suspect]
     Active Substance: TESTOSTERONE
     Indication: Muscle mass
     Dosage: UNK
     Route: 065

REACTIONS (3)
  - Renal infarct [Unknown]
  - Renal artery occlusion [Unknown]
  - Product use in unapproved indication [Unknown]
